FAERS Safety Report 22032867 (Version 1)
Quarter: 2023Q1

REPORT INFORMATION
  Report Type: Other
  Country: GB (occurrence: GB)
  Receive Date: 20230224
  Receipt Date: 20230224
  Transmission Date: 20230417
  Serious: Yes (Disabling, Other)
  Sender: FDA-Public Use
  Company Number: GB-MACLEODS PHARMA EU LTD-MAC2023039865

PATIENT

DRUGS (2)
  1. ARIPIPRAZOLE [Suspect]
     Active Substance: ARIPIPRAZOLE
     Indication: Product used for unknown indication
     Dosage: 10 MILLIGRAM, QD, (START DATE: UNKNOWN DATE IN JULY 2020)
     Route: 065
  2. ARIPIPRAZOLE [Suspect]
     Active Substance: ARIPIPRAZOLE
     Dosage: 15 MILLIGRAM, QD, (START DATE: UNKNOWN DATE IN OCTOBER 2021)
     Route: 065

REACTIONS (1)
  - Parkinsonian gait [Not Recovered/Not Resolved]

NARRATIVE: CASE EVENT DATE: 20220319
